FAERS Safety Report 9319823 (Version 1)
Quarter: 2012Q4

REPORT INFORMATION
  Report Type: Spontaneous
  Country: FR (occurrence: None)
  Receive Date: 20120928
  Receipt Date: 20120928
  Transmission Date: 20130627
  Serious: Yes (Life-Threatening, Hospitalization)
  Sender: FDA-Public Use
  Company Number: 217849

PATIENT
  Age: 52 Year
  Sex: Male
  Weight: 95 kg

DRUGS (5)
  1. INNOHEP [Suspect]
     Indication: PROPHYLAXIS
     Dates: start: 20120509
  2. INNOHEP [Suspect]
     Indication: LEG FRACTURE
     Dates: start: 20120509
  3. INNOHEP [Suspect]
     Indication: PROPHYLAXIS
     Route: 058
     Dates: start: 20120605, end: 20120611
  4. INNOHEP [Suspect]
     Indication: LEG FRACTURE
     Route: 058
     Dates: start: 20120605, end: 20120611
  5. PARIET(RABEPRAZOLE SODIUM) (10 MG, TABLET) [Concomitant]

REACTIONS (2)
  - Embolism venous [None]
  - Pulmonary embolism [None]
